FAERS Safety Report 8407250 (Version 2)
Quarter: 2013Q2

REPORT INFORMATION
  Report Type: Spontaneous
  Country: US (occurrence: US)
  Receive Date: 20120215
  Receipt Date: 20130604
  Transmission Date: 20140414
  Serious: Yes (Other)
  Sender: FDA-Public Use
  Company Number: US-ROCHE-784141

PATIENT
  Age: 27 Year
  Sex: Male
  Weight: 79.45 kg

DRUGS (4)
  1. ACCUTANE [Suspect]
     Indication: ACNE
     Route: 048
  2. ACCUTANE [Suspect]
     Route: 048
     Dates: start: 19960321, end: 199606
  3. BACTROBAN [Concomitant]
  4. ASPIRIN [Concomitant]

REACTIONS (10)
  - Colitis ulcerative [Unknown]
  - Inflammatory bowel disease [Unknown]
  - Stress [Unknown]
  - Depression [Unknown]
  - Irritable bowel syndrome [Unknown]
  - Epistaxis [Unknown]
  - Headache [Unknown]
  - Arthralgia [Unknown]
  - Vision blurred [Unknown]
  - Lip dry [Unknown]
